FAERS Safety Report 12836646 (Version 1)
Quarter: 2016Q4

REPORT INFORMATION
  Report Type: Spontaneous
  Country: US (occurrence: US)
  Receive Date: 20161011
  Receipt Date: 20161011
  Transmission Date: 20170207
  Serious: No
  Sender: FDA-Public Use
  Company Number: None

PATIENT
  Age: 82 Year
  Sex: Female
  Weight: 63.56 kg

DRUGS (6)
  1. METOPROLOL. [Concomitant]
     Active Substance: METOPROLOL
  2. BABY ASPIRIN [Concomitant]
     Active Substance: ASPIRIN
  3. PRAVASTATIN. [Concomitant]
     Active Substance: PRAVASTATIN
  4. CLINDAMYCIN 300MG CAP RANBAXY [Suspect]
     Active Substance: CLINDAMYCIN
     Indication: THERAPEUTIC PROCEDURE
     Route: 048
     Dates: start: 20160708, end: 20160710
  5. MULTIVITAMINE [Concomitant]
  6. CLINDAMYCIN 300MG CAP RANBAXY [Suspect]
     Active Substance: CLINDAMYCIN
     Indication: RASH
     Route: 048
     Dates: start: 20160708, end: 20160710

REACTIONS (4)
  - Urticaria [None]
  - Pharyngeal oedema [None]
  - Impaired healing [None]
  - Puncture site reaction [None]
